FAERS Safety Report 7266114-6 (Version None)
Quarter: 2011Q1

REPORT INFORMATION
  Report Type: 
  Country: None (occurrence: None)
  Receive Date: 20110120
  Receipt Date: 20110108
  Transmission Date: 20110831
  Serious: Yes (Hospitalization)
  Sender: FDA-Public Use
  Company Number: 025108

PATIENT
  Age: 87 Year
  Sex: Female

DRUGS (3)
  1. TOPIRAMATE (TOPIRAMATE 100) [Suspect]
     Dosage: 14 TABLETS AT MOST ORAL
     Route: 048
  2. TEGRETOL [Suspect]
     Dosage: 17.5 TABLETS AT MOST ORAL
     Route: 048
  3. KEPPRA [Suspect]
     Dosage: 28 TABLETS AT MOST ORAL
     Route: 048

REACTIONS (2)
  - SOMNOLENCE [None]
  - UNEVALUABLE EVENT [None]
